FAERS Safety Report 6331895-2 (Version None)
Quarter: 2009Q3

REPORT INFORMATION
  Report Type: 
  Country: None (occurrence: None)
  Receive Date: 20090826
  Receipt Date: 20090819
  Transmission Date: 20100115
  Serious: Yes (Hospitalization, Other)
  Sender: FDA-Public Use
  Company Number: 1000008390

PATIENT

DRUGS (1)
  1. LEXAPRO [Suspect]

REACTIONS (2)
  - CONGENITAL ANOMALY [None]
  - PATERNAL DRUGS AFFECTING FOETUS [None]
